FAERS Safety Report 25417181 (Version 2)
Quarter: 2025Q2

REPORT INFORMATION
  Report Type: Report from Study
  Country: CA (occurrence: CA)
  Receive Date: 20250610
  Receipt Date: 20250625
  Transmission Date: 20250716
  Serious: Yes (Other)
  Sender: BAUSCH AND LOMB
  Company Number: CA-BAUSCH-BL-2025-006084

PATIENT
  Age: 59 Year
  Sex: Female
  Weight: 55.842 kg

DRUGS (4)
  1. SILIQ [Suspect]
     Active Substance: BRODALUMAB
     Indication: Psoriasis
     Dosage: 210MG/1.5ML, WEEK (0-2)
     Route: 058
     Dates: start: 20230629, end: 202307
  2. SILIQ [Suspect]
     Active Substance: BRODALUMAB
     Dosage: 210MG/1.5ML, Q2 WEEKS
     Route: 058
     Dates: start: 202307, end: 202505
  3. MORPHINE [Suspect]
     Active Substance: MORPHINE
     Indication: Musculoskeletal chest pain
     Route: 065
  4. VENTOLIN [Suspect]
     Active Substance: ALBUTEROL SULFATE
     Indication: Product used for unknown indication
     Route: 065

REACTIONS (11)
  - Rib fracture [Not Recovered/Not Resolved]
  - Pneumonia [Recovered/Resolved]
  - Immune system disorder [Recovering/Resolving]
  - Cough [Recovered/Resolved]
  - Dry skin [Recovered/Resolved]
  - Impaired healing [Recovered/Resolved]
  - Musculoskeletal chest pain [Not Recovered/Not Resolved]
  - Bronchitis [Recovered/Resolved]
  - Sinusitis [Recovered/Resolved]
  - Oral candidiasis [Recovered/Resolved]
  - Anosmia [Not Recovered/Not Resolved]

NARRATIVE: CASE EVENT DATE: 20250501
